FAERS Safety Report 7277335-0 (Version None)
Quarter: 2011Q1

REPORT INFORMATION
  Report Type: 
  Country: None (occurrence: None)
  Receive Date: 20110131
  Receipt Date: 20110117
  Transmission Date: 20110831
  Serious: Yes (Other)
  Sender: FDA-Public Use
  Company Number: 2011SP002401

PATIENT
  Age: 40 Year
  Sex: Female

DRUGS (4)
  1. ALPRAZOLAM [Suspect]
     Indication: DEPRESSION
     Dosage: 1.2 MG;QD;PO
     Route: 048
     Dates: start: 20100824, end: 20100830
  2. LORAZEPAM [Suspect]
     Indication: DEPRESSION
     Dosage: 1 MG;PO
     Route: 048
     Dates: start: 20100824, end: 20100830
  3. MIRTAZAPINE [Suspect]
     Indication: DEPRESSION
     Dosage: 15 MG;QD;PO
     Route: 048
     Dates: start: 20100824, end: 20100830
  4. FLUNITRAZEPAM (FLUNITRAZEPAM) [Suspect]
     Indication: DEPRESSION
     Dosage: 2 MG;PO
     Route: 048
     Dates: start: 20100824, end: 20100830

REACTIONS (4)
  - ACTIVITIES OF DAILY LIVING IMPAIRED [None]
  - MALAISE [None]
  - SOMNOLENCE [None]
  - DRUG INTERACTION [None]
